FAERS Safety Report 12947817 (Version 1)
Quarter: 2016Q4

REPORT INFORMATION
  Report Type: Spontaneous
  Country: CA (occurrence: CA)
  Receive Date: 20161116
  Receipt Date: 20161116
  Transmission Date: 20170207
  Serious: Yes (Death)
  Sender: FDA-Public Use
  Company Number: CA-PFIZER INC-2016524266

PATIENT
  Age: 30 Year
  Sex: Male

DRUGS (2)
  1. GENTAMICIN SULFATE. [Suspect]
     Active Substance: GENTAMICIN SULFATE
     Indication: PSEUDOMONAS TEST POSITIVE
     Dosage: UNK
     Route: 042
  2. AMPICILLIN [Suspect]
     Active Substance: AMPICILLIN
     Indication: PSEUDOMONAS TEST POSITIVE
     Dosage: UNK
     Route: 042

REACTIONS (1)
  - Drug ineffective [Fatal]
